FAERS Safety Report 7341060-8 (Version None)
Quarter: 2011Q1

REPORT INFORMATION
  Report Type: 
  Country: None (occurrence: None)
  Receive Date: 20110309
  Receipt Date: 20110225
  Transmission Date: 20110831
  Serious: Yes (Other)
  Sender: FDA-Public Use
  Company Number: PHHY2011GB12407

PATIENT
  Age: 55 Year
  Sex: Female

DRUGS (11)
  1. PACLITAXEL [Suspect]
     Dosage: 350 MG, UNK
     Dates: start: 20101216
  2. PACLITAXEL [Suspect]
     Dosage: 350 MG, UNK
     Dates: start: 20101125
  3. PACLITAXEL [Suspect]
     Dosage: 350 MG, UNK
     Dates: start: 20110114
  4. CARBOPLATIN [Suspect]
     Dosage: 175 MG/M2
     Dates: start: 20101125
  5. PACLITAXEL [Suspect]
     Indication: OVARIAN CANCER
     Dosage: 350 MG, UNK
     Dates: start: 20101104
  6. ONDANSETRON [Concomitant]
  7. CARBOPLATIN [Suspect]
     Dosage: 175 MG/M2
     Dates: start: 20101216
  8. CARBOPLATIN [Suspect]
     Indication: OVARIAN CANCER
     Dosage: 175 MG/M2
     Dates: start: 20101104
  9. CARBOPLATIN [Suspect]
     Dosage: 175 MG/M2
     Dates: start: 20110114
  10. CO-CODAMOL [Concomitant]
  11. DEXAMETHASONE [Concomitant]

REACTIONS (6)
  - ARTERIAL THROMBOSIS [None]
  - SPLINTER HAEMORRHAGES [None]
  - CONTUSION [None]
  - MUSCULOSKELETAL DISCOMFORT [None]
  - INFARCTION [None]
  - PAIN IN EXTREMITY [None]
